FAERS Safety Report 9548696 (Version 1)
Quarter: 2013Q2

REPORT INFORMATION
  Report Type: Spontaneous
  Country: US (occurrence: None)
  Receive Date: 20130627
  Receipt Date: 20130627
  Transmission Date: 20140414
  Serious: Yes (Other)
  Sender: FDA-Public Use
  Company Number: 1000043095

PATIENT
  Age: 25 Year
  Sex: Female

DRUGS (2)
  1. LINZESS [Suspect]
  2. LINZESS [Suspect]

REACTIONS (1)
  - Haematochezia [None]
